FAERS Safety Report 24267273 (Version 1)
Quarter: 2024Q3

REPORT INFORMATION
  Report Type: Spontaneous
  Country: FR (occurrence: FR)
  Receive Date: 20240830
  Receipt Date: 20240830
  Transmission Date: 20241016
  Serious: Yes (Hospitalization)
  Sender: RANBAXY
  Company Number: FR-SUN PHARMACEUTICAL INDUSTRIES LTD-2024RR-465033

PATIENT
  Age: 22 Year
  Sex: Female
  Weight: 114.5 kg

DRUGS (4)
  1. VENLAFAXINE [Suspect]
     Active Substance: VENLAFAXINE HYDROCHLORIDE
     Indication: Intentional overdose
     Dosage: 75 MG X30 CP
     Route: 048
     Dates: start: 20240603, end: 20240603
  2. CLORAZEPATE DIPOTASSIUM [Suspect]
     Active Substance: CLORAZEPATE DIPOTASSIUM
     Indication: Intentional overdose
     Dosage: 10 MG X 30 CP
     Route: 048
     Dates: start: 20240603, end: 20240603
  3. CYAMEMAZINE [Concomitant]
     Active Substance: CYAMEMAZINE
     Indication: Intentional overdose
     Dosage: 45 DOSAGE FORM, UNK
     Route: 048
     Dates: start: 20240603, end: 20240603
  4. LOXAPINE [Concomitant]
     Active Substance: LOXAPINE
     Indication: Intentional overdose
     Dosage: 25 MG X 70 CP
     Route: 048
     Dates: start: 20240603, end: 20240603

REACTIONS (2)
  - Poisoning deliberate [Recovered/Resolved]
  - Coma [Recovered/Resolved]

NARRATIVE: CASE EVENT DATE: 20240603
